FAERS Safety Report 4477819-4 (Version None)
Quarter: 2004Q3

REPORT INFORMATION
  Report Type: 
  Country: None (occurrence: None)
  Receive Date: 20040923
  Receipt Date: 20040617
  Transmission Date: 20050211
  Serious: No
  Sender: FDA-Public Use
  Company Number: USA040670375

PATIENT
  Sex: Female

DRUGS (2)
  1. FORTEO [Suspect]
  2. TETRACYCLINE [Concomitant]

REACTIONS (3)
  - CYANOSIS [None]
  - NAIL DISCOLOURATION [None]
  - SKIN DISCOLOURATION [None]
